FAERS Safety Report 17110185 (Version 1)
Quarter: 2019Q4

REPORT INFORMATION
  Report Type: Spontaneous
  Country: US (occurrence: US)
  Receive Date: 20191204
  Receipt Date: 20191204
  Transmission Date: 20200122
  Serious: No
  Sender: FDA-Public Use
  Company Number: US-MYLANLABS-2019M1114655

PATIENT
  Age: 36 Year
  Sex: Female
  Weight: 73 kg

DRUGS (1)
  1. AMNESTEEM [Suspect]
     Active Substance: ISOTRETINOIN
     Indication: ACNE CYSTIC
     Dosage: 40 MILLIGRAM, QD
     Route: 048
     Dates: start: 20191106, end: 20191120

REACTIONS (5)
  - Arthralgia [Unknown]
  - Myalgia [Unknown]
  - Pain in extremity [Unknown]
  - Limb discomfort [Unknown]
  - Back pain [Unknown]

NARRATIVE: CASE EVENT DATE: 20191118
